FAERS Safety Report 11808966 (Version 1)
Quarter: 2015Q4

REPORT INFORMATION
  Report Type: Spontaneous
  Country: US (occurrence: US)
  Receive Date: 20151207
  Receipt Date: 20151207
  Transmission Date: 20160305
  Serious: No
  Sender: FDA-Public Use
  Company Number: US-ROCHE-1588541

PATIENT
  Sex: Female

DRUGS (15)
  1. METFORMIN [Concomitant]
     Active Substance: METFORMIN HYDROCHLORIDE
     Route: 065
  2. OMEPRAZOLE. [Concomitant]
     Active Substance: OMEPRAZOLE
     Route: 065
  3. MUPIROCIN. [Concomitant]
     Active Substance: MUPIROCIN
     Route: 065
  4. SIMVASTATIN. [Concomitant]
     Active Substance: SIMVASTATIN
     Route: 065
  5. WARFARIN SODIUM. [Concomitant]
     Active Substance: WARFARIN SODIUM
     Route: 065
  6. INVOKANA [Concomitant]
     Active Substance: CANAGLIFLOZIN
     Route: 065
  7. ATENOLOL. [Concomitant]
     Active Substance: ATENOLOL
     Route: 065
  8. LEFLUNOMIDE. [Concomitant]
     Active Substance: LEFLUNOMIDE
     Route: 065
  9. AMLODIPINE BESYLATE. [Concomitant]
     Active Substance: AMLODIPINE BESYLATE
     Route: 065
  10. CEFALEXIN [Concomitant]
     Active Substance: CEPHALEXIN
     Route: 065
  11. CIMZIA [Concomitant]
     Active Substance: CERTOLIZUMAB PEGOL
     Dosage: 2X200MG/ML
     Route: 065
  12. TRADJENTA [Concomitant]
     Active Substance: LINAGLIPTIN
     Route: 065
  13. ACTEMRA [Suspect]
     Active Substance: TOCILIZUMAB
     Indication: RHEUMATOID ARTHRITIS
     Route: 058
     Dates: start: 20140701, end: 20150502
  14. PREDNISONE. [Concomitant]
     Active Substance: PREDNISONE
     Route: 065
  15. GABAPENTIN. [Concomitant]
     Active Substance: GABAPENTIN
     Route: 065

REACTIONS (1)
  - Drug ineffective [Unknown]
